FAERS Safety Report 23423749 (Version 3)
Quarter: 2025Q1

REPORT INFORMATION
  Report Type: Spontaneous
  Country: US (occurrence: US)
  Receive Date: 20240119
  Receipt Date: 20250224
  Transmission Date: 20250409
  Serious: No
  Sender: SANOFI AVENTIS
  Company Number: US-SA-SAC20240116001252

PATIENT
  Age: 69 Year
  Sex: Male

DRUGS (11)
  1. DUPIXENT [Suspect]
     Active Substance: DUPILUMAB
     Indication: Ecchymosis
     Dosage: 300 MG, QOW
     Route: 058
  2. DUPIXENT [Suspect]
     Active Substance: DUPILUMAB
     Dosage: 300 MG, QOW
     Route: 058
  3. AMLODIPINE [Concomitant]
     Active Substance: AMLODIPINE BESYLATE
  4. ATORVASTATIN [Concomitant]
     Active Substance: ATORVASTATIN
  5. POTASSIUM CHLORIDE [Concomitant]
     Active Substance: POTASSIUM CHLORIDE
  6. TACROLIMUS [Concomitant]
     Active Substance: TACROLIMUS
  7. CYANOCOBALAMIN [Concomitant]
     Active Substance: CYANOCOBALAMIN
  8. VITAMIN D3 [Concomitant]
     Active Substance: CHOLECALCIFEROL
  9. CHLORTHALIDONE [Concomitant]
     Active Substance: CHLORTHALIDONE
  10. LEVOTHYROXINE [Concomitant]
     Active Substance: LEVOTHYROXINE
  11. VITAMINS NOS [Concomitant]
     Active Substance: VITAMINS

REACTIONS (7)
  - Injection site pain [Not Recovered/Not Resolved]
  - Hypoaesthesia [Unknown]
  - Neck pain [Unknown]
  - Blood potassium decreased [Recovered/Resolved]
  - Arthritis [Not Recovered/Not Resolved]
  - Bladder polypectomy [Unknown]
  - Product use in unapproved indication [Unknown]

NARRATIVE: CASE EVENT DATE: 20250101
